FAERS Safety Report 17238958 (Version 1)
Quarter: 2020Q1

REPORT INFORMATION
  Report Type: Spontaneous
  Country: US (occurrence: US)
  Receive Date: 20200106
  Receipt Date: 20200106
  Transmission Date: 20200409
  Serious: No
  Sender: FDA-Public Use
  Company Number: US-SA-2020SA000895

PATIENT
  Age: 74 Year
  Sex: Male

DRUGS (1)
  1. DUPIXENT [Suspect]
     Active Substance: DUPILUMAB
     Indication: DERMATITIS ATOPIC
     Dosage: 300 MG, QOW
     Route: 058
     Dates: start: 20191127

REACTIONS (8)
  - Alopecia [Unknown]
  - Fluid retention [Unknown]
  - Arthralgia [Unknown]
  - Dyspnoea [Unknown]
  - Skin exfoliation [Unknown]
  - Pain in extremity [Unknown]
  - Feeling cold [Unknown]
  - Dry skin [Unknown]
